FAERS Safety Report 20693246 (Version 1)
Quarter: 2022Q2

REPORT INFORMATION
  Report Type: Spontaneous
  Country: US (occurrence: US)
  Receive Date: 20220410
  Receipt Date: 20220410
  Transmission Date: 20220721
  Serious: No
  Sender: FDA-Public Use
  Company Number: US-BRISTOL-MYERS SQUIBB COMPANY-2022-015001

PATIENT
  Age: 79 Year
  Sex: Male
  Weight: 88.0 kg

DRUGS (14)
  1. REVLIMID [Suspect]
     Active Substance: LENALIDOMIDE
     Indication: Plasma cell myeloma
     Dosage: 21 DAYS ON AND OFF
     Route: 048
     Dates: start: 20220325
  2. REVLIMID [Suspect]
     Active Substance: LENALIDOMIDE
     Route: 048
     Dates: start: 20220303, end: 20220325
  3. REVLIMID [Suspect]
     Active Substance: LENALIDOMIDE
     Dates: start: 20220125, end: 20220303
  4. REVLIMID [Suspect]
     Active Substance: LENALIDOMIDE
     Route: 048
     Dates: start: 20210106
  5. AMLODIPINE BESYLATE [Concomitant]
     Active Substance: AMLODIPINE BESYLATE
     Indication: Product used for unknown indication
     Route: 048
  6. ATORVASTATIN CALCIUM [Concomitant]
     Active Substance: ATORVASTATIN CALCIUM
     Indication: Product used for unknown indication
     Route: 048
  7. COLCHICINE\PROBENECID [Concomitant]
     Active Substance: COLCHICINE\PROBENECID
     Indication: Product used for unknown indication
     Dosage: 0.5-500MG
     Route: 048
     Dates: start: 20220128
  8. COLCHICINE\PROBENECID [Concomitant]
     Active Substance: COLCHICINE\PROBENECID
     Dosage: 0.5-500MG
     Route: 048
     Dates: start: 20220328
  9. DEXAMETHASONE [Concomitant]
     Active Substance: DEXAMETHASONE
     Indication: Product used for unknown indication
     Route: 048
     Dates: start: 20220224, end: 20220303
  10. DEXAMETHASONE [Concomitant]
     Active Substance: DEXAMETHASONE
     Route: 048
     Dates: start: 20220303, end: 20220328
  11. DEXAMETHASONE [Concomitant]
     Active Substance: DEXAMETHASONE
     Route: 048
     Dates: start: 20220328
  12. ELIQUIS [Concomitant]
     Active Substance: APIXABAN
     Indication: Product used for unknown indication
     Route: 048
     Dates: start: 20201216
  13. HYDRAALAZINE HCL [Concomitant]
     Indication: Product used for unknown indication
     Route: 048
     Dates: start: 20201216
  14. SPIRONOLACTONE [Concomitant]
     Active Substance: SPIRONOLACTONE
     Indication: Product used for unknown indication
     Dates: start: 20201216

REACTIONS (2)
  - Gout [Not Recovered/Not Resolved]
  - Off label use [Unknown]

NARRATIVE: CASE EVENT DATE: 20211115
